FAERS Safety Report 9911626 (Version 3)
Quarter: 2014Q2

REPORT INFORMATION
  Report Type: Spontaneous
  Country: DE (occurrence: DE)
  Receive Date: 20140219
  Receipt Date: 20140408
  Transmission Date: 20141212
  Serious: Yes (Other)
  Sender: FDA-Public Use
  Company Number: PHHY2014DE020177

PATIENT
  Age: 64 Year
  Sex: Male
  Weight: 70 kg

DRUGS (1)
  1. EXFORGE HCT [Suspect]
     Dosage: 1 DF, QD(VALS 160 MG, AMLO 5 MG)
     Route: 048
     Dates: start: 201309

REACTIONS (4)
  - Jaw cyst [Unknown]
  - Jaw fracture [Recovered/Resolved]
  - Dysphagia [Unknown]
  - Wrong technique in drug usage process [Unknown]
